FAERS Safety Report 9705075 (Version 1)
Quarter: 2013Q4

REPORT INFORMATION
  Report Type: Spontaneous
  Country: GB (occurrence: GB)
  Receive Date: 20131122
  Receipt Date: 20131122
  Transmission Date: 20140711
  Serious: Yes (Hospitalization)
  Sender: FDA-Public Use
  Company Number: GB-ACTAVIS-2013-21462

PATIENT
  Age: 55 Year
  Sex: Female

DRUGS (2)
  1. DOCETAXEL (UNKNOWN) [Suspect]
     Indication: BREAST CANCER METASTATIC
     Dosage: 128 MG, 1/ THREE WEEKS; MOST RECENT DOSE WAS GIVEN ON 14 JULY 2010.
     Route: 042
  2. HERCEPTIN [Suspect]
     Indication: BREAST CANCER METASTATIC
     Dosage: 437 MG, 1/ THREE WEEKS; MOST RECENT DOSE WAS GIVEN ON 14 JULY 2010
     Route: 042

REACTIONS (1)
  - Neutropenic sepsis [Recovered/Resolved]
